FAERS Safety Report 5732833-3 (Version None)
Quarter: 2008Q2

REPORT INFORMATION
  Report Type: 
  Country: None (occurrence: None)
  Receive Date: 20080507
  Receipt Date: 20080507
  Transmission Date: 20081010
  Serious: No
  Sender: FDA-Public Use
  Company Number: None

PATIENT
  Age: 53 Year
  Sex: Female
  Weight: 58.9676 kg

DRUGS (1)
  1. LEVOFLOXACIN [Suspect]
     Indication: BRONCHITIS
     Dosage: 10 DAY SUPPLY     Q DAY        PO
     Route: 048
     Dates: start: 20080424, end: 20080429

REACTIONS (8)
  - ARTHRALGIA [None]
  - GAIT DISTURBANCE [None]
  - JOINT STIFFNESS [None]
  - MOBILITY DECREASED [None]
  - MYALGIA [None]
  - OEDEMA PERIPHERAL [None]
  - TENDERNESS [None]
  - TENDONITIS [None]
